FAERS Safety Report 14202520 (Version 2)
Quarter: 2017Q4

REPORT INFORMATION
  Report Type: Spontaneous
  Country: AT (occurrence: AT)
  Receive Date: 20171117
  Receipt Date: 20171206
  Transmission Date: 20180321
  Serious: Yes (Other)
  Sender: FDA-Public Use
  Company Number: AT-BIOGEN-2017BI00484497

PATIENT
  Age: 41 Year
  Sex: Female

DRUGS (1)
  1. AVONEX [Suspect]
     Active Substance: INTERFERON BETA-1A
     Indication: MULTIPLE SCLEROSIS
     Route: 065
     Dates: start: 200203, end: 20160204

REACTIONS (15)
  - Sarcoidosis [Unknown]
  - Secondary progressive multiple sclerosis [Unknown]
  - Mobility decreased [Recovered/Resolved]
  - Vitamin B12 deficiency [Unknown]
  - Depression [Not Recovered/Not Resolved]
  - Tuberculin test positive [Not Recovered/Not Resolved]
  - Weight decreased [Unknown]
  - Helicobacter gastritis [Not Recovered/Not Resolved]
  - Treatment failure [Unknown]
  - General physical health deterioration [Unknown]
  - Influenza like illness [Unknown]
  - Anaemia [Unknown]
  - Blood thyroid stimulating hormone increased [Unknown]
  - Anal fistula [Unknown]
  - Multiple sclerosis relapse [Recovered/Resolved]

NARRATIVE: CASE EVENT DATE: 2002
